FAERS Safety Report 7391610-0 (Version None)
Quarter: 2011Q1

REPORT INFORMATION
  Report Type: 
  Country: None (occurrence: None)
  Receive Date: 20110324
  Receipt Date: 20110310
  Transmission Date: 20110831
  Serious: Yes (Death)
  Sender: FDA-Public Use
  Company Number: JP-2011-10234

PATIENT
  Age: 61 Year
  Sex: Male
  Weight: 59 kg

DRUGS (15)
  1. ALDACTONE [Concomitant]
  2. LONGRES (LISINOPRIL) [Concomitant]
  3. TICLOPIDINE HCL [Concomitant]
  4. FORSENID (SENNOSIDE) [Concomitant]
  5. TANADOPA (DOCARPAMINE) GRANULES [Concomitant]
  6. PIMOBENDAN [Concomitant]
  7. SAMSCA [Suspect]
     Indication: CARDIAC FAILURE
     Dosage: 7.5 MG MILLIGRAM(S), QD, ORAL; 15 MG (MILLIGRAM(S), QD, ORAL;
     Route: 048
     Dates: start: 20110105, end: 20110105
  8. SAMSCA [Suspect]
     Indication: CARDIAC FAILURE
     Dosage: 7.5 MG MILLIGRAM(S), QD, ORAL; 15 MG (MILLIGRAM(S), QD, ORAL;
     Route: 048
     Dates: start: 20110106, end: 20110111
  9. ASPIRIN [Concomitant]
  10. MOXIFLOCACIN HYDROCHLORIDE [Concomitant]
  11. GRACEVIT (SITAFOLAXACIN HYDRATE) [Concomitant]
  12. OMEPRAL (OMEPRAZOLE) TABLET [Concomitant]
  13. MILLIS (GLYCERYL TRINITRATE) [Concomitant]
  14. SIMVASTATIN [Concomitant]
  15. TAZOBACTAM0PIPERACILLIN [Concomitant]

REACTIONS (2)
  - CARDIAC FAILURE CONGESTIVE [None]
  - BLOOD SODIUM INCREASED [None]
